FAERS Safety Report 5291156-X (Version None)
Quarter: 2007Q2

REPORT INFORMATION
  Report Type: 
  Country: None (occurrence: None)
  Receive Date: 20070409
  Receipt Date: 20070404
  Transmission Date: 20071010
  Serious: Yes (Death, Hospitalization)
  Sender: FDA-Public Use
  Company Number: JP-ELI_LILLY_AND_COMPANY-JP200612004167

PATIENT
  Age: 74 Year
  Sex: Female
  Weight: 44 kg

DRUGS (2)
  1. RALOXIFENE HCL [Suspect]
     Indication: OSTEOPOROSIS POSTMENOPAUSAL
     Dosage: 60 MG, DAILY (1/D)
     Route: 048
     Dates: start: 20050223, end: 20061018
  2. DEPAS [Concomitant]
     Indication: ANXIETY DISORDER
     Dosage: 1 MG, DAILY (1/D)
     Route: 048
     Dates: end: 20070125

REACTIONS (2)
  - ILEUS [None]
  - OVARIAN CANCER RECURRENT [None]
